FAERS Safety Report 16053331 (Version 2)
Quarter: 2019Q1

REPORT INFORMATION
  Report Type: Spontaneous
  Country: PL (occurrence: PL)
  Receive Date: 20190308
  Receipt Date: 20190328
  Transmission Date: 20190418
  Serious: Yes (Other)
  Sender: FDA-Public Use
  Company Number: PHHY2019PL050121

PATIENT
  Age: 22 Year
  Sex: Male

DRUGS (4)
  1. RUPATADINE [Suspect]
     Active Substance: RUPATADINE
     Indication: SKIN LESION
     Dosage: UNK UNK, QD
     Route: 065
  2. PREDNISONE. [Suspect]
     Active Substance: PREDNISONE
     Indication: SKIN LESION
     Dosage: 20 MG, UNK
     Route: 048
  3. CLOBETASOL [Suspect]
     Active Substance: CLOBETASOL
     Indication: SKIN LESION
     Dosage: 1 DF, QD (1/DAY)
     Route: 061
  4. AMOXICILLIN TRIHYDRATE +POTASSIUM CLAVULANATE [Suspect]
     Active Substance: AMOXICILLIN\CLAVULANATE POTASSIUM
     Indication: SKIN LESION
     Dosage: 1 G, BID
     Route: 065

REACTIONS (6)
  - Papule [Unknown]
  - Skin haemorrhage [Unknown]
  - Skin disorder [Unknown]
  - Condition aggravated [Recovered/Resolved]
  - Tonsillar hypertrophy [Recovered/Resolved]
  - Pyrexia [Recovered/Resolved]
